FAERS Safety Report 9158222 (Version 2)
Quarter: 2013Q1

REPORT INFORMATION
  Report Type: Report from Study
  Country: FR (occurrence: FR)
  Receive Date: 20130312
  Receipt Date: 20130315
  Transmission Date: 20140127
  Serious: Yes (Other)
  Sender: FDA-Public Use
  Company Number: FR-ROCHE-1199500

PATIENT
  Age: 64 Year
  Sex: Female
  Weight: 79 kg

DRUGS (67)
  1. TOCILIZUMAB [Suspect]
     Indication: RHEUMATOID ARTHRITIS
     Route: 041
     Dates: start: 20100709
  2. TOCILIZUMAB [Suspect]
     Route: 041
     Dates: start: 20100806
  3. TOCILIZUMAB [Suspect]
     Route: 041
     Dates: start: 20100903
  4. TOCILIZUMAB [Suspect]
     Dosage: 4 MG/KG
     Route: 041
     Dates: start: 20101029
  5. TOCILIZUMAB [Suspect]
     Route: 041
     Dates: start: 20101126
  6. TOCILIZUMAB [Suspect]
     Route: 041
     Dates: start: 20101224
  7. TOCILIZUMAB [Suspect]
     Route: 041
     Dates: start: 20110121
  8. TOCILIZUMAB [Suspect]
     Route: 041
     Dates: start: 20110218
  9. TOCILIZUMAB [Suspect]
     Route: 041
     Dates: start: 20110318
  10. TOCILIZUMAB [Suspect]
     Route: 041
     Dates: start: 20110415
  11. TOCILIZUMAB [Suspect]
     Route: 041
     Dates: start: 20110707
  12. TOCILIZUMAB [Suspect]
     Route: 041
     Dates: start: 20110804
  13. TOCILIZUMAB [Suspect]
     Route: 041
     Dates: start: 20110909
  14. TOCILIZUMAB [Suspect]
     Route: 041
     Dates: start: 20120112
  15. TOCILIZUMAB [Suspect]
     Route: 041
     Dates: start: 20120209
  16. TOCILIZUMAB [Suspect]
     Route: 041
     Dates: start: 20120308
  17. TOCILIZUMAB [Suspect]
     Route: 041
     Dates: start: 20120412
  18. TOCILIZUMAB [Suspect]
     Route: 041
     Dates: start: 20120515
  19. TOCILIZUMAB [Suspect]
     Route: 041
     Dates: start: 20120621
  20. CORTANCYL [Concomitant]
     Route: 065
     Dates: start: 2000
  21. CORTANCYL [Concomitant]
     Route: 065
     Dates: start: 20100709
  22. CORTANCYL [Concomitant]
     Route: 065
     Dates: start: 20100806
  23. CORTANCYL [Concomitant]
     Route: 065
     Dates: start: 20100903
  24. CORTANCYL [Concomitant]
     Route: 065
     Dates: start: 20101029
  25. CORTANCYL [Concomitant]
     Route: 065
     Dates: start: 20101126
  26. CORTANCYL [Concomitant]
     Route: 065
     Dates: start: 20101224
  27. CORTANCYL [Concomitant]
     Route: 065
     Dates: start: 20110121
  28. CORTANCYL [Concomitant]
     Route: 065
     Dates: start: 20110218
  29. CORTANCYL [Concomitant]
     Route: 065
     Dates: start: 20110318
  30. CORTANCYL [Concomitant]
     Route: 065
     Dates: start: 20110415
  31. CORTANCYL [Concomitant]
     Route: 065
     Dates: start: 20110707
  32. CORTANCYL [Concomitant]
     Route: 065
     Dates: start: 20110804
  33. CORTANCYL [Concomitant]
     Route: 065
     Dates: start: 20110909
  34. CORTANCYL [Concomitant]
     Route: 065
     Dates: start: 20120112
  35. CORTANCYL [Concomitant]
     Route: 065
     Dates: start: 20120209
  36. CORTANCYL [Concomitant]
     Route: 065
     Dates: start: 20120308
  37. CORTANCYL [Concomitant]
     Route: 065
     Dates: start: 20120412
  38. CORTANCYL [Concomitant]
     Route: 065
     Dates: start: 20120515
  39. CORTANCYL [Concomitant]
     Route: 065
     Dates: start: 20120621
  40. CORTANCYL [Concomitant]
     Route: 065
     Dates: start: 20120621
  41. METHOTREXATE [Concomitant]
     Dosage: 20 MG/WEEK
     Route: 065
     Dates: start: 20100709
  42. METHOTREXATE [Concomitant]
     Dosage: 20 MG/WEEK
     Route: 065
     Dates: start: 20100806
  43. METHOTREXATE [Concomitant]
     Dosage: 20 MG/WEEK
     Route: 065
     Dates: start: 20100903
  44. METHOTREXATE [Concomitant]
     Dosage: 20 MG/WEEK
     Route: 065
     Dates: start: 20101029
  45. METHOTREXATE [Concomitant]
     Dosage: 20 MG/WEEK
     Route: 065
     Dates: start: 20101126
  46. METHOTREXATE [Concomitant]
     Dosage: 20 MG/WEEK
     Route: 065
     Dates: start: 20101224
  47. METHOTREXATE [Concomitant]
     Dosage: 20 MG/WEEK
     Route: 065
     Dates: start: 20110121
  48. METHOTREXATE [Concomitant]
     Dosage: 20 MG/WEEK
     Route: 065
     Dates: start: 20110218
  49. METHOTREXATE [Concomitant]
     Dosage: 20 MG/WEEK
     Route: 065
     Dates: start: 20110318
  50. METHOTREXATE [Concomitant]
     Dosage: 20 MG/WEEK
     Route: 065
     Dates: start: 20110415
  51. METHOTREXATE [Concomitant]
     Dosage: 20 MG/WEEK
     Route: 065
     Dates: start: 20110707
  52. METHOTREXATE [Concomitant]
     Dosage: 15 MG/WEEK
     Route: 065
     Dates: start: 20110804
  53. METHOTREXATE [Concomitant]
     Dosage: 15 MG/WEEK
     Route: 065
     Dates: start: 20110909
  54. METHOTREXATE [Concomitant]
     Dosage: 15 MG/WEEK
     Route: 065
     Dates: start: 20120112
  55. METHOTREXATE [Concomitant]
     Dosage: 15 MG/WEEK
     Route: 065
     Dates: start: 20120209
  56. METHOTREXATE [Concomitant]
     Dosage: 15 MG/WEEK
     Route: 065
     Dates: start: 20120308
  57. METHOTREXATE [Concomitant]
     Dosage: 15 MG/WEEK
     Route: 065
     Dates: start: 20120412
  58. METHOTREXATE [Concomitant]
     Dosage: 15 MG/WEEK
     Route: 065
     Dates: start: 20120515
  59. METHOTREXATE [Concomitant]
     Dosage: 15 MG/WEEK
     Route: 065
     Dates: start: 20120621
  60. METHOTREXATE [Concomitant]
     Dosage: 10 MG/WEEK
     Route: 065
     Dates: start: 20120621
  61. INEXIUM [Concomitant]
     Route: 065
  62. SPECIAFOLDINE [Concomitant]
     Dosage: 10 MG/ WEEK
     Route: 065
  63. SPECIAFOLDINE [Concomitant]
     Dosage: 2/WEEK
     Route: 065
  64. HYDROCORTANCYL [Concomitant]
  65. ACTONEL [Concomitant]
     Route: 065
  66. AMLOR [Concomitant]
     Route: 065
  67. RASILEZ [Concomitant]
     Dosage: 300/12.5
     Route: 065

REACTIONS (4)
  - Diabetes mellitus [Not Recovered/Not Resolved]
  - Neutropenia [Recovered/Resolved]
  - Tooth extraction [Recovered/Resolved]
  - Leukopenia [Not Recovered/Not Resolved]
